FAERS Safety Report 8593191 (Version 3)
Quarter: 2013Q3

REPORT INFORMATION
  Report Type: Spontaneous
  Country: US (occurrence: US)
  Receive Date: 20120604
  Receipt Date: 20130701
  Transmission Date: 20140515
  Serious: Yes (Hospitalization, Other)
  Sender: FDA-Public Use
  Company Number: US-PFIZER INC-2012128866

PATIENT
  Age: 27 Year
  Sex: Female

DRUGS (6)
  1. DILANTIN [Suspect]
     Indication: CONVULSION
     Dosage: 100 MG, 3X/DAY
     Route: 048
     Dates: start: 20011218, end: 20011219
  2. DILANTIN [Suspect]
     Dosage: 100 MG, 1X/DAY, EVERY NIGHT AT BED TIME
     Route: 048
     Dates: start: 20011222
  3. DILANTIN [Suspect]
     Dosage: 300 MG EVERY NIGHT AT BEDTIME
     Route: 048
     Dates: start: 20011225, end: 20020114
  4. ROCEPHIN [Concomitant]
     Dosage: 2 G, 2X/DAY, EVERY TWELVE HOURS
     Route: 042
     Dates: start: 20011229, end: 20020112
  5. FLAGYL [Concomitant]
     Dosage: 500 MG, 2X/DAY, EVERY TWELVE HOURS
     Route: 042
     Dates: start: 20011229, end: 20020112
  6. VANCOMYCIN [Concomitant]
     Dosage: 1 G, 2X/DAY, EVERY TWELVE HOURS
     Route: 042
     Dates: start: 20011229, end: 20020112

REACTIONS (1)
  - Stevens-Johnson syndrome [Unknown]
